FAERS Safety Report 8406835-2 (Version None)
Quarter: 2012Q2

REPORT INFORMATION
  Report Type: 
  Country: None (occurrence: None)
  Receive Date: 20120604
  Receipt Date: 20120524
  Transmission Date: 20120825
  Serious: Yes (Hospitalization)
  Sender: FDA-Public Use
  Company Number: US-JNJFOC-20120409945

PATIENT
  Sex: Male
  Weight: 105.9 kg

DRUGS (6)
  1. HUMIRA [Concomitant]
     Dates: start: 20120314
  2. BENZOYL PEROXIDE [Concomitant]
  3. HUMIRA [Concomitant]
     Indication: CROHN'S DISEASE
     Dates: start: 20120101
  4. LIDEX [Concomitant]
  5. INFLIXIMAB, RECOMBINANT [Suspect]
     Indication: CROHN'S DISEASE
     Route: 042
     Dates: start: 20060831
  6. DOXYCYCLINE [Concomitant]
     Indication: ACNE

REACTIONS (1)
  - CROHN'S DISEASE [None]
